FAERS Safety Report 10882509 (Version 1)
Quarter: 2015Q1

REPORT INFORMATION
  Report Type: Spontaneous
  Country: JP (occurrence: JP)
  Receive Date: 20150303
  Receipt Date: 20150303
  Transmission Date: 20150721
  Serious: Yes (Hospitalization)
  Sender: FDA-Public Use
  Company Number: JP-LUNDBECK-DKLU1109404

PATIENT
  Age: 5 Year
  Sex: Female

DRUGS (7)
  1. POTASSIUM BROMIDE [Suspect]
     Active Substance: POTASSIUM BROMIDE
     Indication: SEIZURE
     Route: 048
  2. THIOPENTAL SODIUM. [Concomitant]
     Active Substance: THIOPENTAL SODIUM
     Indication: PRODUCT USED FOR UNKNOWN INDICATION
  3. MIDAZOLAM [Suspect]
     Active Substance: MIDAZOLAM\MIDAZOLAM HYDROCHLORIDE
     Indication: SEIZURE
     Route: 042
  4. PHENOBARBITAL. [Concomitant]
     Active Substance: PHENOBARBITAL
     Indication: PRODUCT USED FOR UNKNOWN INDICATION
  5. MYSTAN [Suspect]
     Active Substance: CLOBAZAM
     Indication: SEIZURE
     Route: 048
  6. POTASSIUM BROMIDE [Suspect]
     Active Substance: POTASSIUM BROMIDE
     Route: 048
  7. POTASSIUM BROMIDE [Suspect]
     Active Substance: POTASSIUM BROMIDE
     Route: 048

REACTIONS (2)
  - Pancreatitis acute [Recovered/Resolved]
  - Decreased appetite [Unknown]
